FAERS Safety Report 7853609-7 (Version None)
Quarter: 2011Q4

REPORT INFORMATION
  Report Type: 
  Country: None (occurrence: None)
  Receive Date: 20111026
  Receipt Date: 20111020
  Transmission Date: 20120403
  Serious: Yes (Other)
  Sender: FDA-Public Use
  Company Number: US-PFIZER INC-2011254416

PATIENT
  Sex: Male
  Weight: 84 kg

DRUGS (4)
  1. DILANTIN [Concomitant]
     Indication: CONVULSION
     Dosage: UNK
  2. HYDROCHLOROTHIAZIDE [Concomitant]
     Dosage: UNK
  3. LIPITOR [Suspect]
     Indication: BLOOD CHOLESTEROL INCREASED
     Dosage: 20 MG, 1X/DAY
     Route: 048
  4. PLAVIX [Concomitant]
     Dosage: UNK

REACTIONS (6)
  - PAIN IN EXTREMITY [None]
  - BLOOD CHOLESTEROL INCREASED [None]
  - MUSCLE INJURY [None]
  - SOMNOLENCE [None]
  - MUSCULOSKELETAL DISCOMFORT [None]
  - CARTILAGE INJURY [None]
